FAERS Safety Report 23548910 (Version 2)
Quarter: 2024Q1

REPORT INFORMATION
  Report Type: Spontaneous
  Country: US (occurrence: US)
  Receive Date: 20240221
  Receipt Date: 20240223
  Transmission Date: 20240409
  Serious: Yes (Death, Hospitalization)
  Sender: FDA-Public Use
  Company Number: US-PFIZER INC-PV202300036145

PATIENT
  Age: 77 Year
  Sex: Female

DRUGS (3)
  1. XALKORI [Suspect]
     Active Substance: CRIZOTINIB
     Indication: T-cell lymphoma
     Dosage: (TAKE 200MG BY MOUTH ONE TIME A DAY)
     Route: 048
  2. XALKORI [Suspect]
     Active Substance: CRIZOTINIB
     Indication: Lung neoplasm malignant
     Dosage: TAKE 200 MG PO DAILY
     Route: 048
  3. CRIZOTINIB [Concomitant]
     Active Substance: CRIZOTINIB
     Dosage: 200 MG

REACTIONS (2)
  - Influenza [Fatal]
  - Off label use [Unknown]
